FAERS Safety Report 12725046 (Version 1)
Quarter: 2016Q3

REPORT INFORMATION
  Report Type: Report from Study
  Country: US (occurrence: US)
  Receive Date: 20160908
  Receipt Date: 20160908
  Transmission Date: 20161109
  Serious: Yes (Hospitalization, Other)
  Sender: FDA-Public Use
  Company Number: US-GILEAD-2016-0232329

PATIENT
  Age: 86 Year
  Sex: Female

DRUGS (15)
  1. ESCITALOPRAM [Concomitant]
     Active Substance: ESCITALOPRAM OXALATE
  2. SIMVASTATIN. [Concomitant]
     Active Substance: SIMVASTATIN
  3. LEVOTHYROXINE. [Concomitant]
     Active Substance: LEVOTHYROXINE
  4. TUDORZA GENUAIR [Concomitant]
     Active Substance: ACLIDINIUM BROMIDE
  5. BYSTOLIC [Concomitant]
     Active Substance: NEBIVOLOL HYDROCHLORIDE
  6. DIGOXIN. [Concomitant]
     Active Substance: DIGOXIN
  7. PLAVIX [Concomitant]
     Active Substance: CLOPIDOGREL BISULFATE
  8. DONEPEZIL. [Concomitant]
     Active Substance: DONEPEZIL
  9. IPRATROPIUM [Concomitant]
     Active Substance: IPRATROPIUM
  10. METFORMIN [Concomitant]
     Active Substance: METFORMIN HYDROCHLORIDE
  11. AMBRISENTAN [Suspect]
     Active Substance: AMBRISENTAN
     Indication: PULMONARY ARTERIAL HYPERTENSION
     Dosage: 10 MG, QD
     Route: 065
     Dates: start: 20120709
  12. WARFARIN [Concomitant]
     Active Substance: WARFARIN
  13. LASIX [Concomitant]
     Active Substance: FUROSEMIDE
  14. BUDESONIDE. [Concomitant]
     Active Substance: BUDESONIDE
  15. RECLAST [Concomitant]
     Active Substance: ZOLEDRONIC ACID

REACTIONS (4)
  - Wrist fracture [Unknown]
  - Hip fracture [Unknown]
  - Drug dose omission [Not Recovered/Not Resolved]
  - Pelvic fracture [Unknown]

NARRATIVE: CASE EVENT DATE: 20160817
